FAERS Safety Report 10969236 (Version 1)
Quarter: 2015Q1

REPORT INFORMATION
  Report Type: Spontaneous
  Country: IT (occurrence: None)
  Receive Date: 20150327
  Receipt Date: 20150327
  Transmission Date: 20150721
  Serious: Yes (Hospitalization)
  Sender: FDA-Public Use
  Company Number: FK201501414

PATIENT
  Age: 78 Year
  Sex: Male

DRUGS (14)
  1. SIMVASTATIN. [Concomitant]
     Active Substance: SIMVASTATIN
  2. MONOKET (ISOSORBIDE MONONITRATE) [Concomitant]
  3. METFORMIN [Concomitant]
     Active Substance: METFORMIN HYDROCHLORIDE
  4. LASIX [Concomitant]
     Active Substance: FUROSEMIDE
  5. TICLOPIDINE HYDROCHLORIDE. [Concomitant]
     Active Substance: TICLOPIDINE HYDROCHLORIDE
  6. ELOPRAM (CITALOPRAM HYDROBROMIDE) [Concomitant]
  7. SERETIDE [Concomitant]
     Active Substance: FLUTICASONE FUROATE\SALMETEROL XINAFOATE
  8. INDERAL [Concomitant]
     Active Substance: PROPRANOLOL HYDROCHLORIDE
  9. OMEPRAZOLE. [Concomitant]
     Active Substance: OMEPRAZOLE
  10. SPIRIVA (TIOTROPIUM BROMIDE) [Concomitant]
  11. ENTUMIN (CLOTIAPINE) [Concomitant]
     Active Substance: CLOTHIAPINE
  12. LEVOFLOXACIN. [Suspect]
     Active Substance: LEVOFLOXACIN
     Indication: PNEUMONIA
     Dosage: 1 DOSAGE FORMS, 1 IN 1 TOTAL, INTRAVENOUS DRIP
     Route: 041
     Dates: start: 20140328, end: 20140328
  13. TAVOR [Concomitant]
     Active Substance: LORAZEPAM
  14. TILDIEM (DILTIAZEM HYDROCHLORIDE) [Concomitant]

REACTIONS (1)
  - Epilepsy [None]

NARRATIVE: CASE EVENT DATE: 20140428
